FAERS Safety Report 6530277-8 (Version None)
Quarter: 2010Q1

REPORT INFORMATION
  Report Type: 
  Country: None (occurrence: None)
  Receive Date: 20100107
  Receipt Date: 20100103
  Transmission Date: 20100710
  Serious: No
  Sender: FDA-Public Use
  Company Number: US-B.I. PHARMACEUTICALS,INC./RIDGEFIELD-2010-BP-00069BP

PATIENT
  Age: 76 Year
  Sex: Female

DRUGS (11)
  1. FLOMAX [Suspect]
     Indication: CYSTITIS
     Dosage: 0.4 MG
     Route: 048
     Dates: start: 20091223, end: 20100102
  2. ZANTAC 150 [Suspect]
     Indication: URTICARIA
     Dosage: 150 MG
     Route: 048
     Dates: start: 20090103
  3. ZANTAC 150 [Suspect]
     Dosage: 150 MG
     Route: 048
     Dates: start: 20100103
  4. ASPIRIN [Concomitant]
     Indication: CARDIOVASCULAR EVENT PROPHYLAXIS
     Dosage: 81 MG
     Route: 048
  5. CALCIUM PLUS D [Concomitant]
     Route: 048
  6. VITAMIN D [Concomitant]
     Route: 048
  7. PROPRANOLOL [Concomitant]
     Indication: HEART RATE INCREASED
     Route: 048
     Dates: start: 19800101
  8. LIPITOR [Concomitant]
     Indication: BLOOD CHOLESTEROL INCREASED
     Dosage: 10 MG
     Route: 048
     Dates: start: 20000101
  9. VITAMIN C [Concomitant]
     Route: 048
  10. BONIVA [Concomitant]
     Indication: BONE DENSITY DECREASED
     Route: 048
  11. UNSPECIFIED ANTIBIOTIC [Concomitant]
     Indication: CYSTITIS
     Route: 048
     Dates: start: 20091223

REACTIONS (2)
  - LIP SWELLING [None]
  - URTICARIA [None]
